FAERS Safety Report 19372167 (Version 3)
Quarter: 2021Q2

REPORT INFORMATION
  Report Type: Spontaneous
  Country: FR (occurrence: FR)
  Receive Date: 20210604
  Receipt Date: 20210617
  Transmission Date: 20210717
  Serious: Yes (Hospitalization, Other)
  Sender: FDA-Public Use
  Company Number: FR-REGENERON PHARMACEUTICALS, INC.-2021-47740

PATIENT

DRUGS (2)
  1. EYLEA [Suspect]
     Active Substance: AFLIBERCEPT
     Indication: CHOROIDAL NEOVASCULARISATION
     Dosage: OVER 30 EYLEA INJECTIONS (OD) RECEIVED BEFORE THE ONSET OF THE EVENT
     Route: 031
  2. EYLEA [Suspect]
     Active Substance: AFLIBERCEPT
     Dosage: 1 DF, ONCE (OD)
     Route: 031
     Dates: start: 20210311, end: 20210311

REACTIONS (1)
  - Bacterial endophthalmitis [Recovering/Resolving]

NARRATIVE: CASE EVENT DATE: 20210313
